FAERS Safety Report 5208098-8 (Version None)
Quarter: 2006Q4

REPORT INFORMATION
  Report Type: 
  Country: None (occurrence: None)
  Receive Date: 20061027
  Receipt Date: 20060607
  Transmission Date: 20070319
  Serious: Yes (Hospitalization)
  Sender: FDA-Public Use
  Company Number: AMAN20060006

PATIENT
  Age: 71 Year
  Sex: Male

DRUGS (18)
  1. AMANTADINE HCL [Suspect]
     Indication: PARKINSON'S DISEASE
     Dosage: 100 MG DAILY PO
     Route: 048
     Dates: start: 20060224
  2. AMANTADINE HCL [Suspect]
     Indication: PARKINSON'S DISEASE
     Dosage: 100 MG TID PO
     Route: 048
     Dates: end: 20060223
  3. SINEMET [Suspect]
     Indication: PARKINSON'S DISEASE
     Dosage: 1 TAB X5/DAY PO
     Route: 048
  4. SINEMET [Suspect]
     Indication: PARKINSON'S DISEASE
     Dosage: 1 TAB QID PO
     Route: 048
     Dates: start: 20060224
  5. SINEMET [Suspect]
     Indication: PARKINSON'S DISEASE
     Dosage: 3 TABS X5/DAY PO
     Route: 048
     Dates: start: 20060214, end: 20060223
  6. PRAMIPEXOLE DIHYDROCHLORIDE [Suspect]
     Indication: PARKINSON'S DISEASE
     Dosage: 1 TAB TID PO
     Route: 048
     Dates: start: 20060224
  7. PRAMIPEXOLE DIHYDROCHLORIDE [Suspect]
     Indication: PARKINSON'S DISEASE
     Dosage: 3 TABS X5/DAY PO
     Route: 048
     Dates: start: 20060214, end: 20060223
  8. PRAMIPEXOLE DIHYDROCHLORIDE [Suspect]
     Indication: PARKINSON'S DISEASE
     Dosage: 1 TAB X5/DAY PO
     Route: 048
     Dates: end: 20060213
  9. ACENOCOUMAROL [Concomitant]
  10. ASPIRIN [Concomitant]
  11. CARVEDILOL [Concomitant]
  12. MAGNESIUM ASPARTATE [Concomitant]
  13. NITROGLYCERIN [Concomitant]
  14. PRAVASTATIN [Concomitant]
  15. SPIRONOLACTONE [Concomitant]
  16. TORSEMIDE [Concomitant]
  17. EPOETIN BETA [Concomitant]
  18. IMATINIB MESYLATE [Concomitant]

REACTIONS (2)
  - AGGRESSION [None]
  - HALLUCINATION [None]
